FAERS Safety Report 22211876 (Version 2)
Quarter: 2023Q2

REPORT INFORMATION
  Report Type: Spontaneous
  Country: US (occurrence: US)
  Receive Date: 20230414
  Receipt Date: 20230525
  Transmission Date: 20230722
  Serious: Yes (Hospitalization)
  Sender: FDA-Public Use
  Company Number: US-PFIZER INC-PV202300067633

PATIENT
  Age: 65 Year
  Sex: Male

DRUGS (1)
  1. INLYTA [Suspect]
     Active Substance: AXITINIB
     Dosage: UNK

REACTIONS (7)
  - Ulcer haemorrhage [Unknown]
  - Colitis [Not Recovered/Not Resolved]
  - Skin disorder [Unknown]
  - Diarrhoea [Unknown]
  - Increased tendency to bruise [Unknown]
  - Skin fissures [Unknown]
  - Purpura [Unknown]
